FAERS Safety Report 15060374 (Version 1)
Quarter: 2018Q2

REPORT INFORMATION
  Report Type: Spontaneous
  Country: FR (occurrence: FR)
  Receive Date: 20180625
  Receipt Date: 20180625
  Transmission Date: 20180711
  Serious: Yes (Death, Life-Threatening, Hospitalization)
  Sender: FDA-Public Use
  Company Number: FR-ELI_LILLY_AND_COMPANY-FR201806009850

PATIENT
  Age: 91 Year
  Sex: Female

DRUGS (10)
  1. VENTOLINE                          /00139501/ [Concomitant]
     Active Substance: ALBUTEROL
     Dosage: UNK
  2. OLANZAPINE. [Suspect]
     Active Substance: OLANZAPINE
     Indication: SENILE PSYCHOSIS
     Dosage: 10 MG, DAILY
     Route: 048
     Dates: start: 20180405, end: 20180525
  3. CLARITHROMYCINE [Concomitant]
     Active Substance: CLARITHROMYCIN
     Dosage: UNK
  4. FLECAINE [Concomitant]
     Active Substance: FLECAINIDE
     Dosage: UNK
  5. TAZOCILLINE [Concomitant]
     Active Substance: PIPERACILLIN SODIUM\TAZOBACTAM SODIUM
     Dosage: UNK
  6. XANAX [Concomitant]
     Active Substance: ALPRAZOLAM
     Dosage: UNK
  7. CANDESARTAN CILEXETIL. [Concomitant]
     Active Substance: CANDESARTAN CILEXETIL
     Dosage: UNK
  8. LEVOTHYROXINE SODIQUE [Concomitant]
     Active Substance: LEVOTHYROXINE SODIUM
     Dosage: UNK
  9. MIRTAZAPINE. [Concomitant]
     Active Substance: MIRTAZAPINE
     Dosage: UNK
  10. SYMBICORT [Concomitant]
     Active Substance: BUDESONIDE\FORMOTEROL FUMARATE DIHYDRATE
     Dosage: UNK

REACTIONS (2)
  - Neuroleptic malignant syndrome [Recovering/Resolving]
  - Death [Fatal]

NARRATIVE: CASE EVENT DATE: 20180523
